FAERS Safety Report 4343655-2 (Version None)
Quarter: 2004Q2

REPORT INFORMATION
  Report Type: 
  Country: None (occurrence: None)
  Receive Date: 20040419
  Receipt Date: 20040405
  Transmission Date: 20050107
  Serious: Yes (Death)
  Sender: FDA-Public Use
  Company Number: A03200401059

PATIENT
  Age: 34 Year
  Sex: Female
  Weight: 52.6173 kg

DRUGS (32)
  1. AMBIEN [Suspect]
     Indication: INSOMNIA
     Dosage: 10 MG PRN -  ORAL
     Route: 048
     Dates: start: 20010910, end: 20010924
  2. DURAGESIC [Suspect]
     Indication: PAIN
     Dosage: 25 UG, 1 IN 72  HOUR - TRANSDERMAL
     Route: 062
     Dates: start: 20010910, end: 20010930
  3. EFFEXOR XR [Suspect]
     Indication: DEPRESSION
     Dosage: 75 MG OD - ORAL
     Route: 048
     Dates: start: 20100910, end: 20010901
  4. EFFEXOR XR [Suspect]
     Indication: DEPRESSION
     Dosage: 150MG OD - ORAL
     Route: 048
     Dates: start: 20010901, end: 20010901
  5. EFFEXOR XR [Suspect]
     Indication: DEPRESSION
     Dosage: 75 MG OD -ORAL
     Route: 048
     Dates: start: 20010919, end: 20010919
  6. EFFEXOR [Suspect]
     Indication: DEPRESSION
     Dosage: 112.5 MG OD - ORAL
     Route: 048
     Dates: start: 20010921, end: 20010922
  7. EFFEXOR XR [Suspect]
     Indication: DEPRESSION
     Dosage: 150 MG OD - ORAL
     Route: 048
     Dates: start: 20010923, end: 20010901
  8. XANAX [Suspect]
     Indication: ANXIETY
     Dosage: 0.5 MG TID - ORAL
     Route: 048
     Dates: start: 20010915, end: 20010917
  9. XANAX [Suspect]
     Indication: PANIC ATTACK
     Dosage: 0.5 MG TID - ORAL
     Route: 048
     Dates: start: 20010915, end: 20010917
  10. XANAX [Suspect]
     Indication: ANXIETY
     Dosage: 1 MG TID - ORAL
     Route: 048
     Dates: start: 20010918, end: 20010918
  11. XANAX [Suspect]
     Indication: PANIC ATTACK
     Dosage: 1 MG TID - ORAL
     Route: 048
     Dates: start: 20010918, end: 20010918
  12. XANAX [Suspect]
     Indication: ANXIETY
     Dosage: 0.5 MG TID - ORAL
     Route: 048
     Dates: start: 20010819, end: 20010920
  13. XANAX [Suspect]
     Indication: PANIC ATTACK
     Dosage: 0.5 MG TID - ORAL
     Route: 048
     Dates: start: 20010819, end: 20010920
  14. XANAX [Suspect]
     Indication: ANXIETY
     Dosage: 1 MG TID ORAL
     Route: 048
     Dates: start: 20010921, end: 20010923
  15. XANAX [Suspect]
     Indication: PANIC ATTACK
     Dosage: 1 MG TID ORAL
     Route: 048
     Dates: start: 20010921, end: 20010923
  16. XANAX [Suspect]
     Indication: ANXIETY
     Dosage: 0.5 MG TID ORAL
     Route: 048
     Dates: start: 20010924, end: 20010901
  17. XANAX [Suspect]
     Indication: PANIC ATTACK
     Dosage: 0.5 MG TID ORAL
     Route: 048
     Dates: start: 20010924, end: 20010901
  18. PHENERGAN [Suspect]
     Indication: NAUSEA
     Dosage: 25 MG PRN ORAL
     Route: 048
     Dates: start: 20010913
  19. GABAPENTIN [Concomitant]
  20. OLANZAPINE [Concomitant]
  21. ATORVASTATIN [Concomitant]
  22. CIPROFLOXACIN [Concomitant]
  23. METHYLPHENIDATE HCL [Concomitant]
  24. LEVOTHYROXINE SODIUM [Concomitant]
  25. MIRTAZAPINE [Concomitant]
  26. METOCLOPRAMIDE [Concomitant]
  27. SULFAMETHOXAZOLE + TRIMETHOPRIM [Concomitant]
  28. FLUCONAZOLE [Concomitant]
  29. INSULIN LISPRO [Concomitant]
  30. MECLIZINE [Concomitant]
  31. CONJUGATED ESTROGEN [Concomitant]
  32. LORATADINE [Concomitant]

REACTIONS (17)
  - ANXIETY [None]
  - APATHY [None]
  - ASPIRATION [None]
  - BACTERIA URINE NO ORGANISM OBSERVED [None]
  - CANDIDIASIS [None]
  - CARDIAC ARREST [None]
  - CARDIO-RESPIRATORY ARREST [None]
  - CONVULSION [None]
  - DECREASED INTEREST [None]
  - DISTURBANCE IN ATTENTION [None]
  - EATING DISORDER [None]
  - FATIGUE [None]
  - HYPERSENSITIVITY [None]
  - HYPOGLYCAEMIA [None]
  - LETHARGY [None]
  - NAUSEA [None]
  - PANIC ATTACK [None]
